FAERS Safety Report 16232401 (Version 2)
Quarter: 2019Q2

REPORT INFORMATION
  Report Type: Report from Study
  Country: US (occurrence: US)
  Receive Date: 20190424
  Receipt Date: 20190430
  Transmission Date: 20190711
  Serious: No
  Sender: FDA-Public Use
  Company Number: PHEH2019US016863

PATIENT
  Sex: Male

DRUGS (1)
  1. ENTRESTO [Suspect]
     Active Substance: SACUBITRIL\VALSARTAN
     Indication: PRODUCT USED FOR UNKNOWN INDICATION
     Route: 065

REACTIONS (8)
  - Back pain [Unknown]
  - Joint injury [Unknown]
  - Blood pressure decreased [Unknown]
  - Dizziness postural [Unknown]
  - Somnolence [Unknown]
  - Insomnia [Unknown]
  - Hypoaesthesia [Unknown]
  - Fall [Unknown]
